FAERS Safety Report 21971498 (Version 1)
Quarter: 2023Q1

REPORT INFORMATION
  Report Type: Spontaneous
  Country: US (occurrence: US)
  Receive Date: 20230209
  Receipt Date: 20230209
  Transmission Date: 20230418
  Serious: No
  Sender: FDA-Public Use
  Company Number: US-BAUSCH-BL-2023-001777

PATIENT
  Age: 74 Year
  Sex: Male

DRUGS (1)
  1. ATIVAN [Suspect]
     Active Substance: LORAZEPAM
     Indication: Product used for unknown indication
     Dosage: LORAZEPAM 15 MG TABLETS
     Route: 065

REACTIONS (4)
  - Nightmare [Unknown]
  - Somnolence [Unknown]
  - Drug intolerance [Unknown]
  - Product use complaint [Unknown]
